FAERS Safety Report 9068717 (Version 1)
Quarter: 2013Q1

REPORT INFORMATION
  Report Type: Spontaneous
  Country: US (occurrence: None)
  Receive Date: 20130212
  Receipt Date: 20130212
  Transmission Date: 20140127
  Serious: No
  Sender: FDA-Public Use
  Company Number: None

PATIENT
  Age: 70 Year
  Sex: Male
  Weight: 76.2 kg

DRUGS (1)
  1. XARELTO [Suspect]
     Indication: THROMBOSIS
     Dosage: 1 TAB  TWICE A DAY

REACTIONS (7)
  - Faeces discoloured [None]
  - Headache [None]
  - Chills [None]
  - Fatigue [None]
  - Asthenia [None]
  - Haemorrhage [None]
  - Local swelling [None]
